FAERS Safety Report 23202838 (Version 1)
Quarter: 2023Q4

REPORT INFORMATION
  Report Type: Spontaneous
  Country: US (occurrence: US)
  Receive Date: 20231120
  Receipt Date: 20231120
  Transmission Date: 20240109
  Serious: No
  Sender: FDA-Public Use
  Company Number: US-SA-SAC20231115001623

PATIENT
  Age: 63 Year
  Sex: Male

DRUGS (3)
  1. FLOMAX [Suspect]
     Active Substance: TAMSULOSIN HYDROCHLORIDE
     Dosage: UNK
     Route: 065
  2. ELIGARD [Concomitant]
     Active Substance: LEUPROLIDE ACETATE
     Dosage: UNK
  3. SILODOSIN [Concomitant]
     Active Substance: SILODOSIN
     Dosage: UNK

REACTIONS (4)
  - Hypersensitivity [Unknown]
  - Erythema [Unknown]
  - Swelling [Unknown]
  - Dry skin [Unknown]
